FAERS Safety Report 7553085-8 (Version None)
Quarter: 2011Q2

REPORT INFORMATION
  Report Type: 
  Country: None (occurrence: None)
  Receive Date: 20110616
  Receipt Date: 20110602
  Transmission Date: 20111010
  Serious: Yes (Other)
  Sender: FDA-Public Use
  Company Number: NZ-UCBSA-035016

PATIENT

DRUGS (2)
  1. CERTOLIZUMAB PEGOL [Suspect]
     Route: 058
     Dates: start: 20080108
  2. CERTOLIZUMAB PEGOL [Suspect]
     Indication: RHEUMATOID ARTHRITIS
     Route: 058
     Dates: start: 20051128, end: 20071220

REACTIONS (2)
  - LIP ULCERATION [None]
  - LIP NEOPLASM MALIGNANT STAGE UNSPECIFIED [None]
